FAERS Safety Report 22638139 (Version 1)
Quarter: 2023Q2

REPORT INFORMATION
  Report Type: Spontaneous
  Country: CA (occurrence: CA)
  Receive Date: 20230626
  Receipt Date: 20230626
  Transmission Date: 20230721
  Serious: Yes (Other)
  Sender: FDA-Public Use
  Company Number: CA-PFIZER INC-202300227740

PATIENT
  Age: 38 Year
  Sex: Female
  Weight: 73.5 kg

DRUGS (5)
  1. METHOTREXATE SODIUM [Suspect]
     Active Substance: METHOTREXATE SODIUM
     Dosage: UNK
     Dates: start: 201602
  2. ACTEMRA [Concomitant]
     Active Substance: TOCILIZUMAB
     Dosage: UNK
  3. CIMZIA [Concomitant]
     Active Substance: CERTOLIZUMAB PEGOL
     Dosage: UNK
     Dates: end: 2023
  4. LEFLUNOMIDE [Concomitant]
     Active Substance: LEFLUNOMIDE
     Dosage: UNK
     Dates: start: 201603, end: 2016
  5. SULFASALAZINE [Concomitant]
     Active Substance: SULFASALAZINE
     Dosage: UNK
     Route: 048
     Dates: start: 201603

REACTIONS (12)
  - Neutropenia [Not Recovered/Not Resolved]
  - Interstitial lung disease [Unknown]
  - Bronchiectasis [Unknown]
  - Blood creatine phosphokinase increased [Unknown]
  - Condition aggravated [Unknown]
  - Fatigue [Unknown]
  - Bone erosion [Unknown]
  - Rales [Unknown]
  - Bronchial wall thickening [Unknown]
  - Tuberculin test positive [Unknown]
  - Joint space narrowing [Unknown]
  - Exostosis [Unknown]
